FAERS Safety Report 22238902 (Version 1)
Quarter: 2023Q2

REPORT INFORMATION
  Report Type: Report from Study
  Country: CA (occurrence: CA)
  Receive Date: 20230421
  Receipt Date: 20230421
  Transmission Date: 20230722
  Serious: Yes (Death, Hospitalization)
  Sender: FDA-Public Use
  Company Number: CA-JNJFOC-20230440098

PATIENT
  Sex: Male
  Weight: 130 kg

DRUGS (1)
  1. REMICADE [Suspect]
     Active Substance: INFLIXIMAB
     Indication: Psoriasis
     Route: 042

REACTIONS (4)
  - Death [Fatal]
  - Intestinal resection [Unknown]
  - Appendicectomy [Unknown]
  - Dehydration [Unknown]
